FAERS Safety Report 7334954-0 (Version None)
Quarter: 2011Q1

REPORT INFORMATION
  Report Type: 
  Country: None (occurrence: None)
  Receive Date: 20110307
  Receipt Date: 20110221
  Transmission Date: 20110831
  Serious: Yes (Other)
  Sender: FDA-Public Use
  Company Number: FR-ROCHE-762033

PATIENT
  Age: 27 Year
  Sex: Male

DRUGS (10)
  1. PREDNISONE [Suspect]
     Dosage: DAY 2.
     Route: 065
  2. PREDNISONE [Suspect]
     Dosage: DAY 3.
     Route: 065
  3. PREDNISONE [Suspect]
     Indication: IMMUNOSUPPRESSANT DRUG THERAPY
     Dosage: DAY 1.
     Route: 065
  4. ANTILYMPHOCYTE IMMUNOGLOBULIN [Suspect]
     Indication: IMMUNOSUPPRESSANT DRUG THERAPY
     Dosage: FOR 10 DAYS, DRUG: ANTITHYMOCYTE GLOBULIN.
     Route: 065
  5. VALGANCICLOVIR [Concomitant]
     Dosage: FOR 6 MONTHS.
  6. MYCOPHENOLATE MOFETIL [Suspect]
     Indication: IMMUNOSUPPRESSANT DRUG THERAPY
     Route: 065
  7. TACROLIMUS [Suspect]
     Indication: IMMUNOSUPPRESSANT DRUG THERAPY
     Dosage: TO GIVE A BLOOD CONCENTRATION OF 10-13 NG FOR THE FIRST 3 MONTHS.
     Route: 048
  8. PREDNISONE [Suspect]
     Dosage: FOR 7 DAYS.
     Route: 065
  9. PREDNISONE [Suspect]
     Dosage: PROGRESSIVE REDUCTION TO 10 MG/ DAY.
     Route: 065
  10. SULFAMETHOXAZOLE/TRIMETHOPRIM [Concomitant]
     Dosage: GIVEN FOR 6 MONTHS.
     Route: 065

REACTIONS (2)
  - ACUTE RESPIRATORY DISTRESS SYNDROME [None]
  - LUNG INFECTION PSEUDOMONAL [None]
